FAERS Safety Report 9537597 (Version 1)
Quarter: 2013Q3

REPORT INFORMATION
  Report Type: Spontaneous
  Country: US (occurrence: US)
  Receive Date: 20130919
  Receipt Date: 20130919
  Transmission Date: 20140515
  Serious: No
  Sender: FDA-Public Use
  Company Number: US-TEVA-433309USA

PATIENT
  Sex: Male
  Weight: 88.53 kg

DRUGS (4)
  1. NUVIGIL [Suspect]
     Indication: SLEEP APNOEA SYNDROME
     Dates: start: 2012, end: 201308
  2. NUVIGIL [Suspect]
     Indication: SOMNOLENCE
     Dates: start: 201308
  3. NORTRIPTYLINE [Concomitant]
     Indication: DEPRESSION
  4. MARPLAN [Concomitant]
     Indication: DEPRESSION

REACTIONS (4)
  - Vision blurred [Not Recovered/Not Resolved]
  - Diplopia [Not Recovered/Not Resolved]
  - Dizziness [Not Recovered/Not Resolved]
  - Inappropriate schedule of drug administration [Unknown]
